FAERS Safety Report 20848744 (Version 1)
Quarter: 2022Q2

REPORT INFORMATION
  Report Type: Other
  Country: IL (occurrence: None)
  Receive Date: 20220519
  Receipt Date: 20220519
  Transmission Date: 20220720
  Serious: Yes (Other)
  Sender: FDA-Public Use
  Company Number: IL-ROCHE-3098353

PATIENT
  Sex: Female

DRUGS (3)
  1. ACTEMRA [Suspect]
     Active Substance: TOCILIZUMAB
     Indication: Rheumatoid arthritis
     Route: 058
  2. PREDNISONE [Concomitant]
     Active Substance: PREDNISONE
  3. ASPIRIN [Concomitant]
     Active Substance: ASPIRIN

REACTIONS (11)
  - Feeling drunk [Unknown]
  - Haemorrhage [Unknown]
  - Erythema [Unknown]
  - Infection [Unknown]
  - Erythema [Unknown]
  - Injection site extravasation [Unknown]
  - Pruritus [Unknown]
  - Burning sensation [Unknown]
  - Asthenia [Unknown]
  - Gait disturbance [Unknown]
  - Intra-abdominal haemorrhage [Unknown]
